FAERS Safety Report 20887975 (Version 3)
Quarter: 2024Q1

REPORT INFORMATION
  Report Type: Spontaneous
  Country: US (occurrence: US)
  Receive Date: 20220529
  Receipt Date: 20240307
  Transmission Date: 20240410
  Serious: Yes (Other)
  Sender: FDA-Public Use
  Company Number: US-JNJFOC-20220553634

PATIENT
  Sex: Female

DRUGS (3)
  1. ELMIRON [Suspect]
     Active Substance: PENTOSAN POLYSULFATE SODIUM
     Indication: Cystitis interstitial
     Dosage: 100 MG; 2 IN THE MORNING AND 2 AT NIGHT
     Route: 048
  2. ELMIRON [Suspect]
     Active Substance: PENTOSAN POLYSULFATE SODIUM
     Dosage: 100 MG; 2 IN THE MORNING AND 2 AT NIGHT
     Route: 048
     Dates: start: 1997, end: 2011
  3. ELMIRON [Suspect]
     Active Substance: PENTOSAN POLYSULFATE SODIUM
     Dosage: 100 MG; 2 IN THE MORNING AND 2 AT NIGHT
     Route: 048
     Dates: start: 2011

REACTIONS (2)
  - Maculopathy [Unknown]
  - Off label use [Unknown]
